FAERS Safety Report 21912955 (Version 1)
Quarter: 2023Q1

REPORT INFORMATION
  Report Type: Spontaneous
  Country: US (occurrence: US)
  Receive Date: 20230125
  Receipt Date: 20230125
  Transmission Date: 20230417
  Serious: No
  Sender: FDA-Public Use
  Company Number: US-ALLERGAN-2233701US

PATIENT
  Sex: Female

DRUGS (8)
  1. BOTOX [Suspect]
     Active Substance: ONABOTULINUMTOXINA
     Indication: Migraine
     Dosage: 20 UNITS, SINGLE, 4 SITES
     Dates: start: 20220301, end: 20220301
  2. BOTOX [Suspect]
     Active Substance: ONABOTULINUMTOXINA
     Dosage: 55 UNITS,10 SITES
     Dates: start: 20220301, end: 20220301
  3. BOTOX [Suspect]
     Active Substance: ONABOTULINUMTOXINA
     Dosage: 15 UNITS,DIVIDED INTO 3 SITES
     Dates: start: 20220301, end: 20220301
  4. BOTOX [Suspect]
     Active Substance: ONABOTULINUMTOXINA
     Dosage: 40 UNITS,DIVIDED INTO 8 SITES
     Dates: start: 20220301, end: 20220301
  5. BOTOX [Suspect]
     Active Substance: ONABOTULINUMTOXINA
     Dosage: 20 UNITS, 4 SITES
     Dates: start: 20220301, end: 20220301
  6. BOTOX [Suspect]
     Active Substance: ONABOTULINUMTOXINA
     Dosage: 30 UNITS,DIVIDED INTO 6 SITES
     Dates: start: 20220301
  7. BOTOX [Suspect]
     Active Substance: ONABOTULINUMTOXINA
     Dosage: 5 UNITS, SINGLE,1 SITE
     Dates: start: 20220301, end: 20220301
  8. BOTOX [Suspect]
     Active Substance: ONABOTULINUMTOXINA
     Dosage: 10 UNITS, SINGLE,DIVIDED INTO 2 SITES
     Dates: start: 20211221, end: 20211221

REACTIONS (4)
  - Temporomandibular joint syndrome [Recovering/Resolving]
  - Off label use [Unknown]
  - Migraine [Unknown]
  - Therapeutic response shortened [Unknown]

NARRATIVE: CASE EVENT DATE: 20220101
